FAERS Safety Report 26186456 (Version 1)
Quarter: 2025Q4

REPORT INFORMATION
  Report Type: Spontaneous
  Country: US (occurrence: None)
  Receive Date: 20251219
  Receipt Date: 20251219
  Transmission Date: 20260118
  Serious: Yes (Hospitalization)
  Sender: FDA-CTU
  Company Number: None

PATIENT
  Age: 64 Year
  Sex: Male

DRUGS (1)
  1. APIXABAN [Suspect]
     Active Substance: APIXABAN
     Indication: Atrial fibrillation
     Dosage: 5 MG BID PO
     Route: 048
     Dates: start: 20240307, end: 20250615

REACTIONS (6)
  - Gastrointestinal haemorrhage [None]
  - Palpitations [None]
  - Chest pain [None]
  - Dizziness [None]
  - Haemoglobin decreased [None]
  - Dizziness [None]

NARRATIVE: CASE EVENT DATE: 20250615
